FAERS Safety Report 8622038-0 (Version None)
Quarter: 2012Q3

REPORT INFORMATION
  Report Type: 
  Country: None (occurrence: None)
  Receive Date: 20120823
  Receipt Date: 20120823
  Transmission Date: 20120928
  Serious: Yes (Hospitalization)
  Sender: FDA-Public Use
  Company Number: None

PATIENT
  Age: 62 Year
  Sex: Female
  Weight: 62.3 kg

DRUGS (4)
  1. PREDNISONE [Concomitant]
  2. GLIPIZIDE [Concomitant]
  3. ZORTRESS [Suspect]
     Indication: RENAL TRANSPLANT
     Dosage: 0.75 MG, BID, ORAL
     Route: 048
     Dates: start: 20120619, end: 20120726
  4. MYFORTIC [Suspect]
     Indication: RENAL TRANSPLANT
     Dosage: 360 MG, BID, ORAL
     Route: 048
     Dates: start: 20060101, end: 20120726

REACTIONS (7)
  - ABDOMINAL ADHESIONS [None]
  - MENTAL STATUS CHANGES POSTOPERATIVE [None]
  - LOWER GASTROINTESTINAL HAEMORRHAGE [None]
  - SMALL INTESTINAL OBSTRUCTION [None]
  - POST PROCEDURAL COMPLICATION [None]
  - ENTEROCUTANEOUS FISTULA [None]
  - RESPIRATORY FAILURE [None]
